FAERS Safety Report 8280612 (Version 3)
Quarter: 2013Q1

REPORT INFORMATION
  Report Type: Report from Study
  Country: US (occurrence: US)
  Receive Date: 20111208
  Receipt Date: 20130108
  Transmission Date: 20140127
  Serious: Yes (Hospitalization, Disabling, Other)
  Sender: FDA-Public Use
  Company Number: US-ABBOTT-11P-163-0879689-00

PATIENT
  Sex: Female
  Weight: 74.91 kg

DRUGS (12)
  1. HUMIRA [Suspect]
     Indication: RHEUMATOID ARTHRITIS
     Route: 058
     Dates: start: 2008
  2. CLONIDINE [Concomitant]
     Indication: HYPERTENSION
  3. METOPROLOL [Concomitant]
     Indication: HYPERTENSION
  4. GABAPENTIN [Concomitant]
     Indication: DIABETIC NEUROPATHY
  5. OXAPROZIN [Concomitant]
     Indication: INFLAMMATION
  6. SULFASALAZINE [Concomitant]
     Indication: INFLAMMATION
  7. METFORMIN [Concomitant]
     Indication: DIABETES MELLITUS
  8. LISINOPRIL [Concomitant]
     Indication: HYPERTENSION
  9. PRILOSEC [Concomitant]
     Indication: GASTROOESOPHAGEAL REFLUX DISEASE
  10. NABUMETONE [Concomitant]
     Indication: INFLAMMATION
  11. OXYBUTYNIN [Concomitant]
     Indication: POLLAKIURIA
  12. PRILOSEC [Concomitant]
     Indication: GASTROOESOPHAGEAL REFLUX DISEASE

REACTIONS (12)
  - Optic ischaemic neuropathy [Recovering/Resolving]
  - Visual acuity reduced [Recovered/Resolved with Sequelae]
  - Thrombosis [Not Recovered/Not Resolved]
  - Eye haemorrhage [Not Recovered/Not Resolved]
  - Vision blurred [Not Recovered/Not Resolved]
  - Headache [Recovered/Resolved]
  - Blood glucose increased [Recovered/Resolved]
  - Foreign body sensation in eyes [Not Recovered/Not Resolved]
  - Memory impairment [Not Recovered/Not Resolved]
  - Arthritis [Recovered/Resolved]
  - Rheumatoid arthritis [Not Recovered/Not Resolved]
  - Eye haemorrhage [Recovered/Resolved]
